FAERS Safety Report 6003877-1 (Version None)
Quarter: 2008Q4

REPORT INFORMATION
  Report Type: 
  Country: None (occurrence: None)
  Receive Date: 20081216
  Receipt Date: 20081113
  Transmission Date: 20090506
  Serious: No
  Sender: FDA-Public Use
  Company Number: US-BAYER-200838876NA

PATIENT
  Age: 35 Year
  Sex: Female
  Weight: 99 kg

DRUGS (1)
  1. MIRENA [Suspect]
     Indication: CONTRACEPTION
     Route: 015
     Dates: start: 20081113

REACTIONS (4)
  - ABDOMINAL PAIN [None]
  - DIZZINESS [None]
  - GENITAL HAEMORRHAGE [None]
  - HEADACHE [None]
